FAERS Safety Report 21877247 (Version 1)
Quarter: 2023Q1

REPORT INFORMATION
  Report Type: Spontaneous
  Country: US (occurrence: None)
  Receive Date: 20230116
  Receipt Date: 20230116
  Transmission Date: 20230418
  Serious: Yes (Hospitalization)
  Sender: FDA-Public Use
  Company Number: None

PATIENT
  Sex: Male

DRUGS (27)
  1. ZENPEP [Suspect]
     Active Substance: PANCRELIPASE AMYLASE\PANCRELIPASE LIPASE\PANCRELIPASE PROTEASE
     Indication: Diabetes mellitus
     Dates: start: 20220831
  2. ALBUTEROL [Concomitant]
     Active Substance: ALBUTEROL
  3. AZITHROMYCIN TAB [Concomitant]
  4. BUPROPN HCL TAB [Concomitant]
  5. BUPROPN HCL TAB [Concomitant]
  6. CIPROFLOXACN TAB [Concomitant]
  7. CIPROFLOXACN TAB [Concomitant]
  8. CITALOPRAM TAB [Concomitant]
  9. CITALOPRAM TAB [Concomitant]
  10. DOXYCYCLINE HYCLATE [Concomitant]
     Active Substance: DOXYCYCLINE HYCLATE
  11. FLUCONAZOLE TAB [Concomitant]
  12. FLUCONAZOLE TAB [Concomitant]
  13. FLUTICASONE SPR [Concomitant]
  14. ACETAMINOPHEN\HYDROCODONE [Concomitant]
     Active Substance: ACETAMINOPHEN\HYDROCODONE
  15. HYPER-SAL NEB [Concomitant]
  16. METOCLOPRAM TAB [Concomitant]
  17. NYSTATIN [Concomitant]
     Active Substance: NYSTATIN
  18. OMEPRAZOLE SODIUM [Concomitant]
     Active Substance: OMEPRAZOLE SODIUM
  19. OXYCODONE AND ACETAMINOPHEN [Concomitant]
     Active Substance: ACETAMINOPHEN\OXYCODONE HYDROCHLORIDE
  20. PANCRECARB [Concomitant]
  21. PANTOPRAZOLE TAB [Concomitant]
  22. PREDNISONE [Concomitant]
     Active Substance: PREDNISONE
  23. PULMOZYME SOL [Concomitant]
  24. RANITIDINE TAB [Concomitant]
  25. SULFAMETHOXAZOLE\TRIMETHOPRIM [Concomitant]
     Active Substance: SULFAMETHOXAZOLE\TRIMETHOPRIM
  26. TOBI NEB [Concomitant]
  27. TUSSIONEXsus [Concomitant]

REACTIONS (2)
  - COVID-19 [None]
  - Therapy interrupted [None]
